FAERS Safety Report 9288272 (Version 1)
Quarter: 2013Q2

REPORT INFORMATION
  Report Type: Spontaneous
  Country: US (occurrence: US)
  Receive Date: 20130514
  Receipt Date: 20130514
  Transmission Date: 20140414
  Serious: Yes (Hospitalization, Other)
  Sender: FDA-Public Use
  Company Number: US-SANOFI-AVENTIS-2013SA048016

PATIENT
  Age: 47 Year
  Sex: Male

DRUGS (2)
  1. AUBAGIO [Suspect]
     Indication: MULTIPLE SCLEROSIS
     Dosage: THERAPY START DATE - SIX DAYS AGO
     Route: 048
  2. ASPIRIN [Concomitant]
     Dosage: DOSE - TWO 80 MG DAILY

REACTIONS (6)
  - Cerebrovascular accident [Unknown]
  - Asthenia [Unknown]
  - Dysarthria [Unknown]
  - Confusional state [Unknown]
  - Blood pressure increased [Unknown]
  - Drug dose omission [Unknown]
